FAERS Safety Report 22591221 (Version 2)
Quarter: 2025Q1

REPORT INFORMATION
  Report Type: Spontaneous
  Country: US (occurrence: US)
  Receive Date: 20230612
  Receipt Date: 20250207
  Transmission Date: 20250409
  Serious: Yes (Life-Threatening, Other)
  Sender: PURDUE
  Company Number: US-PURDUE PHARMA-USA-2023-0302670

PATIENT
  Sex: Male
  Weight: 72.562 kg

DRUGS (2)
  1. OXYCONTIN [Suspect]
     Active Substance: OXYCODONE HYDROCHLORIDE
     Indication: Pain
     Route: 048
     Dates: start: 2016
  2. OXYCONTIN [Suspect]
     Active Substance: OXYCODONE HYDROCHLORIDE
     Route: 048
     Dates: start: 2016

REACTIONS (6)
  - Mental disorder [Recovered/Resolved]
  - Illness [Recovered/Resolved]
  - Self-medication [Recovered/Resolved]
  - Drug dependence [Recovered/Resolved]
  - Impaired quality of life [Unknown]
  - Unevaluable event [Unknown]

NARRATIVE: CASE EVENT DATE: 20160101
